FAERS Safety Report 19868217 (Version 2)
Quarter: 2021Q3

REPORT INFORMATION
  Report Type: Spontaneous
  Country: CH (occurrence: GR)
  Receive Date: 20210922
  Receipt Date: 20210930
  Transmission Date: 20211014
  Serious: Yes (Death, Other)
  Sender: FDA-Public Use
  Company Number: GR-ASTELLAS-2021US035108

PATIENT
  Age: 55 Year
  Sex: Female

DRUGS (2)
  1. DEXAMETHASONE. [Concomitant]
     Active Substance: DEXAMETHASONE
     Indication: PRODUCT USED FOR UNKNOWN INDICATION
     Route: 065
  2. CRESEMBA [Suspect]
     Active Substance: ISAVUCONAZONIUM SULFATE
     Indication: BRONCHOPULMONARY ASPERGILLOSIS
     Route: 042
     Dates: start: 20200920, end: 20201016

REACTIONS (6)
  - Incorrect dose administered [Unknown]
  - Pyopneumothorax [Unknown]
  - Overdose [Unknown]
  - Septic shock [Fatal]
  - Acinetobacter test positive [Unknown]
  - Off label use [Unknown]

NARRATIVE: CASE EVENT DATE: 20200920
